FAERS Safety Report 7935685-6 (Version None)
Quarter: 2011Q4

REPORT INFORMATION
  Report Type: 
  Country: None (occurrence: None)
  Receive Date: 20111121
  Receipt Date: 20111107
  Transmission Date: 20120403
  Serious: Yes (Hospitalization, Other)
  Sender: FDA-Public Use
  Company Number: 2011P1010179

PATIENT
  Age: 42 Year
  Sex: Female
  Weight: 101 kg

DRUGS (2)
  1. SODIUM CHLORIDE [Suspect]
     Indication: ANAESTHETIC COMPLICATION
     Dosage: 10 ML;X2; INTH
     Route: 037
  2. MULTI-VITAMINS [Concomitant]

REACTIONS (8)
  - PARAESTHESIA [None]
  - BACK PAIN [None]
  - HEADACHE [None]
  - TACHYPNOEA [None]
  - NAUSEA [None]
  - HYPOAESTHESIA [None]
  - PAIN IN EXTREMITY [None]
  - TACHYCARDIA [None]
